FAERS Safety Report 5224707-1 (Version None)
Quarter: 2007Q1

REPORT INFORMATION
  Report Type: 
  Country: None (occurrence: None)
  Receive Date: 20070131
  Receipt Date: 20070124
  Transmission Date: 20070707
  Serious: Yes (Other)
  Sender: FDA-Public Use
  Company Number: CA-JNJFOC-20070106420

PATIENT
  Sex: Female
  Weight: 65 kg

DRUGS (7)
  1. REMICADE [Suspect]
     Indication: COLITIS ULCERATIVE
     Route: 042
  2. SOLU-CORTEF [Concomitant]
     Indication: PREMEDICATION
  3. ACTONEL [Concomitant]
  4. CALCIUM PLUS [Concomitant]
  5. VITAMIN D [Concomitant]
  6. PREDNISONE [Concomitant]
  7. LEVOTHYROXINE SODIUM [Concomitant]
     Indication: THYROID DISORDER

REACTIONS (5)
  - C-REACTIVE PROTEIN INCREASED [None]
  - DISCOMFORT [None]
  - LIPASE INCREASED [None]
  - OEDEMA PERIPHERAL [None]
  - PLATELET COUNT INCREASED [None]
